FAERS Safety Report 6287855-3 (Version None)
Quarter: 2009Q3

REPORT INFORMATION
  Report Type: 
  Country: None (occurrence: None)
  Receive Date: 20090729
  Receipt Date: 20070829
  Transmission Date: 20100115
  Serious: Yes (Other)
  Sender: FDA-Public Use
  Company Number: US-ASTRAZENECA-2006UW11281

PATIENT
  Age: 499 Month
  Sex: Female
  Weight: 86.2 kg

DRUGS (16)
  1. SEROQUEL [Suspect]
     Indication: DEPRESSION
     Dosage: 300-400MG DAILY
     Route: 048
     Dates: start: 20020203
  2. SEROQUEL [Suspect]
     Indication: BIPOLAR DISORDER
     Dosage: 300-400MG DAILY
     Route: 048
     Dates: start: 20020203
  3. SEROQUEL [Suspect]
     Dosage: 400-600 MG
     Route: 048
     Dates: start: 20020624
  4. SEROQUEL [Suspect]
     Dosage: 400-600 MG
     Route: 048
     Dates: start: 20020624
  5. NEURONTIN [Concomitant]
     Dosage: 500-600 QHS
     Dates: start: 20030713
  6. GLUCOPHAGE [Concomitant]
     Dosage: 500-1000 MG
     Route: 048
     Dates: start: 20020627
  7. GLYBURIDE [Concomitant]
     Dosage: 5-20 MG
     Route: 048
     Dates: start: 20020627
  8. LOTENSIN [Concomitant]
     Dosage: 10-20 DAILY
     Route: 048
     Dates: start: 20040205
  9. ZOLOFT [Concomitant]
     Dosage: 50-200 MG
     Dates: start: 20020628
  10. BENADRYL [Concomitant]
     Indication: ANXIETY
     Dosage: 2 PO QHS, 1 POQM, Q PO PRN
     Route: 048
     Dates: start: 20040318
  11. DEPAKOTE [Concomitant]
     Dosage: 500-750 MG
     Route: 048
     Dates: start: 19990602
  12. VERAPAMIL [Concomitant]
     Dosage: 120-240 MG DAILY
     Route: 048
     Dates: start: 19990602
  13. PREMARIN [Concomitant]
     Dates: start: 20020627
  14. GLUCOTROL XL [Concomitant]
     Route: 048
     Dates: start: 20040318
  15. DIOVAN [Concomitant]
     Dates: start: 20031109
  16. PAXIL [Concomitant]
     Dates: start: 20020627

REACTIONS (4)
  - DIABETES MELLITUS [None]
  - NEUROPATHY PERIPHERAL [None]
  - TYPE 1 DIABETES MELLITUS [None]
  - TYPE 2 DIABETES MELLITUS [None]
